FAERS Safety Report 9290697 (Version 1)
Quarter: 2013Q2

REPORT INFORMATION
  Report Type: Spontaneous
  Country: US (occurrence: None)
  Receive Date: 20130514
  Receipt Date: 20130514
  Transmission Date: 20140414
  Serious: No
  Sender: FDA-Public Use
  Company Number: None

PATIENT
  Age: 86 Year
  Sex: Female

DRUGS (1)
  1. PREDNISOLONE AC OPTHALMIC SUSPEN [Suspect]
     Dosage: 1 DROP 4 TIMES OPHTHALMIC
     Route: 047
     Dates: start: 20130404, end: 20130511

REACTIONS (2)
  - Eye irritation [None]
  - Lacrimation increased [None]
